FAERS Safety Report 4782735-4 (Version None)
Quarter: 2005Q3

REPORT INFORMATION
  Report Type: 
  Country: None (occurrence: None)
  Receive Date: 20050914
  Receipt Date: 20050614
  Transmission Date: 20060218
  Serious: Yes (Death)
  Sender: FDA-Public Use
  Company Number: 163-20785-05060196

PATIENT
  Age: 67 Year
  Sex: Male

DRUGS (5)
  1. THALOMID [Suspect]
     Indication: METASTASES TO CENTRAL NERVOUS SYSTEM
     Dosage: 200 MG, DAILY, SIX WEEKS ON, TWO  WEEKS OFF, ORAL
     Route: 048
     Dates: start: 20050202, end: 20050501
  2. THALOMID [Suspect]
     Indication: METASTATIC MALIGNANT MELANOMA
     Dosage: 200 MG, DAILY, SIX WEEKS ON, TWO  WEEKS OFF, ORAL
     Route: 048
     Dates: start: 20050202, end: 20050501
  3. THALOMID [Suspect]
     Indication: MULTIPLE MYELOMA
     Dosage: 200 MG, DAILY, SIX WEEKS ON, TWO  WEEKS OFF, ORAL
     Route: 048
     Dates: start: 20050202, end: 20050501
  4. THALOMID [Suspect]
  5. TEMODAR [Concomitant]

REACTIONS (3)
  - DEATH [None]
  - DISEASE PROGRESSION [None]
  - METASTASES TO CENTRAL NERVOUS SYSTEM [None]
